FAERS Safety Report 11653854 (Version 5)
Quarter: 2015Q4

REPORT INFORMATION
  Report Type: Spontaneous
  Country: US (occurrence: US)
  Receive Date: 20151022
  Receipt Date: 20151222
  Transmission Date: 20160304
  Serious: Yes (Death, Hospitalization)
  Sender: FDA-Public Use
  Company Number: US-ACTELION-A-NJ2015-125905

PATIENT
  Age: 38 Year
  Sex: Female

DRUGS (3)
  1. VELETRI [Suspect]
     Active Substance: EPOPROSTENOL
     Indication: PULMONARY ARTERIAL HYPERTENSION
     Dosage: 30 NG/KG, PER MIN
     Route: 042
     Dates: start: 20140219, end: 20151115
  2. XARELTO [Concomitant]
     Active Substance: RIVAROXABAN
  3. REVATIO [Concomitant]
     Active Substance: SILDENAFIL CITRATE

REACTIONS (7)
  - Malaise [Unknown]
  - Right ventricular failure [Unknown]
  - Death [Fatal]
  - Pulmonary arterial hypertension [Unknown]
  - Fatigue [Unknown]
  - Pulmonary arterial pressure increased [Unknown]
  - Generalised oedema [Unknown]

NARRATIVE: CASE EVENT DATE: 20151115
